FAERS Safety Report 8829229 (Version 1)
Quarter: 2012Q4

REPORT INFORMATION
  Report Type: Spontaneous
  Country: GB (occurrence: None)
  Receive Date: 20121004
  Receipt Date: 20121004
  Transmission Date: 20130627
  Serious: Yes (Life-Threatening, Hospitalization, Other)
  Sender: FDA-Public Use
  Company Number: CL-445-2012

PATIENT
  Age: 75 Year
  Sex: Female

DRUGS (5)
  1. ONDANSETRON [Suspect]
     Indication: ANTIEMETIC SUPPORTIVE CARE
  2. METHYLENE BLUE [Suspect]
     Indication: SCAN NOS PARATHYROID
     Route: 042
  3. FENTANYL [Suspect]
     Indication: ANALGESIA
  4. CITALOPRAM [Suspect]
     Indication: ANTIDEPRESSANT THERAPY
  5. TRAMADOL [Suspect]
     Indication: ANALGESIC THERAPY

REACTIONS (9)
  - Serotonin syndrome [None]
  - Drug interaction [None]
  - Confusional state [None]
  - Agitation [None]
  - Depressed level of consciousness [None]
  - Myoclonus [None]
  - Respiratory distress [None]
  - Dialysis [None]
  - Pneumonia [None]
